FAERS Safety Report 15611228 (Version 1)
Quarter: 2018Q4

REPORT INFORMATION
  Report Type: Report from Study
  Country: US (occurrence: US)
  Receive Date: 20181113
  Receipt Date: 20181113
  Transmission Date: 20190205
  Serious: Yes (Death, Life-Threatening, Other)
  Sender: FDA-Public Use
  Company Number: US-NAPPMUNDI-USA-2017-0145170

PATIENT
  Age: 56 Year
  Sex: Male

DRUGS (1)
  1. OXYCODONE HYDROCHLORIDE. [Suspect]
     Active Substance: OXYCODONE HYDROCHLORIDE
     Indication: PRODUCT USED FOR UNKNOWN INDICATION
     Dosage: 80 MG, UNK
     Route: 048

REACTIONS (7)
  - Rhabdomyolysis [Unknown]
  - Hypotension [Unknown]
  - Overdose [Fatal]
  - Acute kidney injury [Unknown]
  - Compartment syndrome [Unknown]
  - Respiratory arrest [Unknown]
  - Miosis [Unknown]

NARRATIVE: CASE EVENT DATE: 20160709
